FAERS Safety Report 20537769 (Version 4)
Quarter: 2022Q3

REPORT INFORMATION
  Report Type: Spontaneous
  Country: JP (occurrence: JP)
  Receive Date: 20220302
  Receipt Date: 20220714
  Transmission Date: 20221026
  Serious: Yes (Other)
  Sender: FDA-Public Use
  Company Number: JP-GSKNCCC-Case-01433126_AE-55338

PATIENT

DRUGS (7)
  1. SOTROVIMAB [Suspect]
     Active Substance: SOTROVIMAB
     Indication: COVID-19 treatment
     Dosage: 500 MG, OVER 30 MIN, DILUTED WITH FLUID REPLACEMENT 100 ML
     Dates: start: 20220225, end: 20220225
  2. INSULIN LISPRO [Concomitant]
     Active Substance: INSULIN LISPRO
     Dosage: UNK
  3. INSULIN GLARGINE [Concomitant]
     Active Substance: INSULIN GLARGINE
     Dosage: UNK
  4. AMLODIPINE BESYLATE [Concomitant]
     Active Substance: AMLODIPINE BESYLATE
     Dosage: 2.5 MG
  5. VALSARTAN [Concomitant]
     Active Substance: VALSARTAN
     Dosage: 80 MG
  6. CALONAL [Concomitant]
     Active Substance: ACETAMINOPHEN
     Indication: Antipyresis
     Dosage: 1500 MG
     Dates: start: 20220225, end: 20220228
  7. CLARITIN TABLETS (LORATADINE) [Concomitant]
     Indication: Prophylaxis
     Dosage: 10 MG
     Dates: start: 20220225, end: 20220225

REACTIONS (10)
  - Anaphylactic shock [Recovered/Resolved]
  - Bradycardia [Recovered/Resolved]
  - Erythema [Recovered/Resolved]
  - Rash [Recovered/Resolved]
  - Urticaria [Recovered/Resolved]
  - Pruritus [Recovered/Resolved]
  - Blood pressure systolic decreased [Recovered/Resolved]
  - Infusion related reaction [Recovered/Resolved]
  - Hypersensitivity [Recovered/Resolved]
  - Presyncope [Recovered/Resolved]

NARRATIVE: CASE EVENT DATE: 20220225
